FAERS Safety Report 9284984 (Version 3)
Quarter: 2013Q2

REPORT INFORMATION
  Report Type: Report from Study
  Country: JP (occurrence: JP)
  Receive Date: 20130513
  Receipt Date: 20130603
  Transmission Date: 20140414
  Serious: Yes (Hospitalization, Other)
  Sender: FDA-Public Use
  Company Number: PHHY2013JP039111

PATIENT
  Age: 40 Year
  Sex: Male

DRUGS (3)
  1. LEPONEX / CLOZARIL [Suspect]
     Indication: SCHIZOPHRENIA
     Dosage: 600 MG, QD
     Route: 048
     Dates: start: 20130123
  2. LEPONEX / CLOZARIL [Suspect]
     Dosage: UNK
     Route: 048
  3. LEPONEX / CLOZARIL [Suspect]
     Dosage: UNK
     Route: 048
     Dates: end: 20130418

REACTIONS (6)
  - Respiratory failure [Recovering/Resolving]
  - Myoclonus [Recovering/Resolving]
  - Impulsive behaviour [Unknown]
  - Agitation [Unknown]
  - Neutropenia [Unknown]
  - Salivary hypersecretion [Unknown]
